FAERS Safety Report 18346031 (Version 1)
Quarter: 2020Q4

REPORT INFORMATION
  Report Type: Spontaneous
  Country: PL (occurrence: PL)
  Receive Date: 20201005
  Receipt Date: 20201005
  Transmission Date: 20210114
  Serious: Yes (Other)
  Sender: FDA-Public Use
  Company Number: PL-NOVOPROD-734925

PATIENT
  Age: 55 Year
  Sex: Male
  Weight: 85 kg

DRUGS (3)
  1. VICTOZA [Suspect]
     Active Substance: LIRAGLUTIDE
     Indication: TYPE 2 DIABETES MELLITUS
     Dosage: 1.2 MG
     Route: 058
     Dates: start: 20191001
  2. METFORMAX [Concomitant]
     Active Substance: METFORMIN HYDROCHLORIDE
     Indication: TYPE 2 DIABETES MELLITUS
     Dosage: 2000 MG
     Route: 048
     Dates: start: 2015
  3. DIAPREL [Concomitant]
     Active Substance: GLICLAZIDE
     Indication: TYPE 2 DIABETES MELLITUS
     Dosage: 30 MG
     Route: 048
     Dates: start: 2018

REACTIONS (2)
  - Blood glucose increased [Unknown]
  - Device malfunction [Unknown]

NARRATIVE: CASE EVENT DATE: 20200611
